FAERS Safety Report 4371237-5 (Version None)
Quarter: 2004Q2

REPORT INFORMATION
  Report Type: 
  Country: None (occurrence: None)
  Receive Date: 20040603
  Receipt Date: 20040517
  Transmission Date: 20050107
  Serious: Yes (Hospitalization, Other)
  Sender: FDA-Public Use
  Company Number: ES-JNJFOC-20040204089

PATIENT
  Age: 47 Year
  Sex: Male

DRUGS (5)
  1. REMICADE [Suspect]
     Indication: ANKYLOSING SPONDYLITIS
     Dosage: 300 MG, INTRAVENOUS; 400 MG, INTRAVENOUS
     Route: 042
     Dates: start: 20020905, end: 20030206
  2. REMICADE [Suspect]
     Indication: ANKYLOSING SPONDYLITIS
     Dosage: 300 MG, INTRAVENOUS; 400 MG, INTRAVENOUS
     Route: 042
     Dates: start: 20030206, end: 20040122
  3. METHOTREXATE [Concomitant]
  4. SULFASALAZINE [Concomitant]
  5. ISONIAZID [Concomitant]

REACTIONS (14)
  - ACUTE RESPIRATORY DISTRESS SYNDROME [None]
  - ACUTE RESPIRATORY FAILURE [None]
  - ARTHRALGIA [None]
  - ASTHENIA [None]
  - CHEST PAIN [None]
  - CYTOMEGALOVIRUS INFECTION [None]
  - DEEP VEIN THROMBOSIS [None]
  - DYSPNOEA EXERTIONAL [None]
  - HEPATITIS [None]
  - INTERSTITIAL LUNG DISEASE [None]
  - KERATOCONJUNCTIVITIS SICCA [None]
  - NIGHT SWEATS [None]
  - PSEUDOMONAS INFECTION [None]
  - PULMONARY EMBOLISM [None]
